FAERS Safety Report 4368669-8 (Version None)
Quarter: 2004Q2

REPORT INFORMATION
  Report Type: 
  Country: None (occurrence: None)
  Receive Date: 20040602
  Receipt Date: 20040513
  Transmission Date: 20050107
  Serious: Yes (Hospitalization)
  Sender: FDA-Public Use
  Company Number: 2004214363NL

PATIENT
  Age: 74 Year
  Sex: Female

DRUGS (5)
  1. CAMPTOSAR [Suspect]
     Indication: COLON CANCER METASTATIC
     Dosage: 410 MG, CYCLIC; IV
     Route: 042
     Dates: start: 20040504, end: 20040504
  2. XELODA [Suspect]
     Indication: COLON CANCER METASTATIC
     Dosage: 1650 MG, BID; ORAL
     Route: 048
     Dates: start: 20040504, end: 20040507
  3. ASCAL CARDIO (CARBASALATE CALCIUM) [Concomitant]
  4. SPIRONOLACTONE [Concomitant]
  5. OXAZEPAM [Concomitant]

REACTIONS (4)
  - DEHYDRATION [None]
  - HYPONATRAEMIA [None]
  - SUBILEUS [None]
  - VOMITING [None]
